FAERS Safety Report 8065733-7 (Version None)
Quarter: 2012Q1

REPORT INFORMATION
  Report Type: 
  Country: None (occurrence: None)
  Receive Date: 20120124
  Receipt Date: 20110620
  Transmission Date: 20120608
  Serious: No
  Sender: FDA-Public Use
  Company Number: US-TEVA-284816USA

PATIENT
  Sex: Female

DRUGS (12)
  1. LORAZEPAM [Concomitant]
  2. TRAMADOL HCL [Concomitant]
  3. BACLOFEN [Concomitant]
  4. PREDNISONE TAB [Concomitant]
  5. GABAPENTIN [Concomitant]
  6. POTASSIUM CHLORIDE [Concomitant]
  7. FUROSEMIDE [Concomitant]
  8. ACETYLSALICYLIC ACID SRT [Concomitant]
  9. HYDROCHLOROTHIAZIDE [Concomitant]
  10. FLUTICASONE PROPIONATE [Concomitant]
  11. COPAXONE [Suspect]
     Indication: MULTIPLE SCLEROSIS
     Route: 058
     Dates: start: 20110319, end: 20110408
  12. LISINOPRIL [Concomitant]

REACTIONS (3)
  - VISUAL FIELD DEFECT [None]
  - HERPES ZOSTER [None]
  - MALAISE [None]
